FAERS Safety Report 10345568 (Version 3)
Quarter: 2014Q3

REPORT INFORMATION
  Report Type: Spontaneous
  Country: US (occurrence: US)
  Receive Date: 20140728
  Receipt Date: 20140815
  Transmission Date: 20150326
  Serious: No
  Sender: FDA-Public Use
  Company Number: US-PFIZER INC-2014205712

PATIENT
  Sex: Male

DRUGS (2)
  1. AMIODARONE HYDROCHLORIDE. [Suspect]
     Active Substance: AMIODARONE HYDROCHLORIDE
     Dosage: 100 MG, DAILY
     Dates: start: 20140606, end: 20140627
  2. AMIODARONE HYDROCHLORIDE. [Suspect]
     Active Substance: AMIODARONE HYDROCHLORIDE
     Dosage: 200 MG, DAILY

REACTIONS (15)
  - Fatigue [Not Recovered/Not Resolved]
  - Alopecia [Unknown]
  - Foreign body in eye [Not Recovered/Not Resolved]
  - Nipple swelling [Unknown]
  - Breast swelling [Not Recovered/Not Resolved]
  - Gynaecomastia [Not Recovered/Not Resolved]
  - Dry eye [Unknown]
  - Erythema [Unknown]
  - Hyperaesthesia [Unknown]
  - Gait disturbance [Not Recovered/Not Resolved]
  - Hypothyroidism [Not Recovered/Not Resolved]
  - Hallucination [Unknown]
  - Deposit eye [Unknown]
  - Constipation [Unknown]
  - Pruritus [Recovering/Resolving]
